FAERS Safety Report 19248887 (Version 3)
Quarter: 2021Q2

REPORT INFORMATION
  Report Type: Spontaneous
  Country: JP (occurrence: JP)
  Receive Date: 20210512
  Receipt Date: 20210623
  Transmission Date: 20210717
  Serious: Yes (Hospitalization)
  Sender: FDA-Public Use
  Company Number: JP-EISAI MEDICAL RESEARCH-EC-2021-092431

PATIENT
  Age: 78 Year
  Sex: Female
  Weight: 55 kg

DRUGS (3)
  1. SAMSCA [Concomitant]
     Active Substance: TOLVAPTAN
     Indication: WEIGHT INCREASED
     Route: 048
     Dates: start: 20200823, end: 20200826
  2. BISOPROLOL [Concomitant]
     Active Substance: BISOPROLOL
     Indication: AORTIC ANEURYSM
     Route: 048
     Dates: start: 20200823
  3. DAYVIGO [Suspect]
     Active Substance: LEMBOREXANT
     Indication: INSOMNIA
     Route: 048
     Dates: start: 20200822, end: 20200826

REACTIONS (1)
  - Delirium [Recovered/Resolved]

NARRATIVE: CASE EVENT DATE: 20200826
